FAERS Safety Report 14280505 (Version 2)
Quarter: 2017Q4

REPORT INFORMATION
  Report Type: Report from Study
  Country: CO (occurrence: CO)
  Receive Date: 20171213
  Receipt Date: 20171228
  Transmission Date: 20180321
  Serious: Yes (Hospitalization, Other)
  Sender: FDA-Public Use
  Company Number: PHHY2017CO183128

PATIENT
  Age: 45 Year
  Sex: Female
  Weight: 49 kg

DRUGS (2)
  1. GILENYA [Suspect]
     Active Substance: FINGOLIMOD HYDROCHLORIDE
     Indication: MULTIPLE SCLEROSIS
     Dosage: 0.5 MG, QD
     Route: 048
     Dates: end: 20171203
  2. VITAMIN D [Concomitant]
     Active Substance: CHOLECALCIFEROL
     Indication: FATIGUE
     Route: 065

REACTIONS (4)
  - Treatment failure [Unknown]
  - Blindness [Unknown]
  - Optic neuritis [Unknown]
  - Multiple sclerosis relapse [Unknown]

NARRATIVE: CASE EVENT DATE: 20171127
